FAERS Safety Report 10823522 (Version 2)
Quarter: 2016Q1

REPORT INFORMATION
  Report Type: Report from Study
  Country: US (occurrence: US)
  Receive Date: 20150218
  Receipt Date: 20160125
  Transmission Date: 20160525
  Serious: No
  Sender: FDA-Public Use
  Company Number: US-ABBVIE-14K-163-1306264-00

PATIENT
  Age: 54 Year
  Sex: Female

DRUGS (2)
  1. HUMIRA [Suspect]
     Active Substance: ADALIMUMAB
     Route: 065
  2. HUMIRA [Suspect]
     Active Substance: ADALIMUMAB
     Indication: RHEUMATOID ARTHRITIS
     Route: 065
     Dates: start: 201405

REACTIONS (7)
  - Incorrect product storage [Unknown]
  - Device issue [Unknown]
  - Drug dispensing error [Unknown]
  - Wrong technique in product usage process [Unknown]
  - Device issue [Unknown]
  - Device issue [Unknown]
  - Pain [Unknown]

NARRATIVE: CASE EVENT DATE: 201405
